FAERS Safety Report 4780547-9 (Version None)
Quarter: 2005Q3

REPORT INFORMATION
  Report Type: 
  Country: None (occurrence: None)
  Receive Date: 20050914
  Receipt Date: 20050416
  Transmission Date: 20060218
  Serious: Yes (Hospitalization)
  Sender: FDA-Public Use
  Company Number: 163-20785-05040394

PATIENT
  Age: 66 Year
  Sex: Female
  Weight: 60 kg

DRUGS (19)
  1. THALOMID [Suspect]
     Indication: MULTIPLE MYELOMA
     Dosage: ORAL ; ORAL ; 50 MG, QD, ORAL
     Route: 048
     Dates: start: 20040303, end: 20040101
  2. THALOMID [Suspect]
     Indication: MULTIPLE MYELOMA
     Dosage: ORAL ; ORAL ; 50 MG, QD, ORAL
     Route: 048
     Dates: start: 20040414, end: 20040101
  3. THALOMID [Suspect]
     Indication: MULTIPLE MYELOMA
     Dosage: ORAL ; ORAL ; 50 MG, QD, ORAL
     Route: 048
     Dates: start: 20040830, end: 20041013
  4. BORTEZOMIB (BORTEZOMIB) [Suspect]
     Indication: MULTIPLE MYELOMA
     Dates: start: 20040303, end: 20040101
  5. BORTEZOMIB (BORTEZOMIB) [Suspect]
     Indication: MULTIPLE MYELOMA
     Dates: start: 20040414, end: 20040101
  6. MELPHALAN (MELPHALAN) [Suspect]
     Indication: MULTIPLE MYELOMA
     Dosage: INTRAVENOUS ; 324 MG, INTRAVENOUS
     Route: 042
     Dates: start: 20040510, end: 20040510
  7. MELPHALAN (MELPHALAN) [Suspect]
     Indication: MULTIPLE MYELOMA
     Dosage: INTRAVENOUS ; 324 MG, INTRAVENOUS
     Route: 042
     Dates: start: 20040804, end: 20040804
  8. DEXAMETHASONE [Suspect]
     Indication: MULTIPLE MYELOMA
     Dosage: ORAL ; ORAL ; 20 MG, QD, ORAL
     Route: 048
     Dates: start: 20040414, end: 20040101
  9. DEXAMETHASONE [Suspect]
     Indication: MULTIPLE MYELOMA
     Dosage: ORAL ; ORAL ; 20 MG, QD, ORAL
     Route: 048
     Dates: start: 20050303, end: 20040101
  10. DEXAMETHASONE [Suspect]
     Indication: MULTIPLE MYELOMA
     Dosage: ORAL ; ORAL ; 20 MG, QD, ORAL
     Route: 048
     Dates: start: 20040830, end: 20040902
  11. DEXAMETHASONE [Suspect]
     Indication: MULTIPLE MYELOMA
     Dosage: ORAL ; ORAL ; 20 MG, QD, ORAL
     Route: 048
     Dates: start: 20041006, end: 20041009
  12. CISPLATIN [Suspect]
     Indication: MULTIPLE MYELOMA
     Dates: start: 20040303, end: 20040101
  13. CISPLATIN [Suspect]
     Indication: MULTIPLE MYELOMA
     Dates: start: 20040414, end: 20040101
  14. ADRIAMYCIN PFS [Suspect]
     Indication: MULTIPLE MYELOMA
     Dates: start: 20040303, end: 20040101
  15. ADRIAMYCIN PFS [Suspect]
     Indication: MULTIPLE MYELOMA
     Dates: start: 20040414, end: 20040101
  16. CYCLOPHOSPHAMIDE [Suspect]
     Indication: MULTIPLE MYELOMA
     Dates: start: 20040303, end: 20040101
  17. CYCLOPHOSPHAMIDE [Suspect]
     Indication: MULTIPLE MYELOMA
     Dates: start: 20040414, end: 20040101
  18. ETOPOSIDE [Suspect]
     Indication: MULTIPLE MYELOMA
     Dates: start: 20040303, end: 20040101
  19. ETOPOSIDE [Suspect]
     Indication: MULTIPLE MYELOMA
     Dates: start: 20040414, end: 20040101

REACTIONS (10)
  - ATELECTASIS [None]
  - CHILLS [None]
  - COUGH [None]
  - CYTOMEGALOVIRUS INFECTION [None]
  - INFECTION [None]
  - LUNG INFILTRATION [None]
  - PLEURAL EFFUSION [None]
  - PNEUMONIA [None]
  - PYREXIA [None]
  - STAPHYLOCOCCAL INFECTION [None]
